FAERS Safety Report 9642432 (Version 1)
Quarter: 2013Q4

REPORT INFORMATION
  Report Type: Spontaneous
  Country: US (occurrence: US)
  Receive Date: 20131024
  Receipt Date: 20131024
  Transmission Date: 20140711
  Serious: No
  Sender: FDA-Public Use
  Company Number: US-009507513-1310USA007724

PATIENT
  Sex: Female

DRUGS (2)
  1. SAPHRIS [Suspect]
     Indication: DEPRESSION
     Dosage: 5 MG, ONCE DAILY AT NIGHT TIME
  2. SAPHRIS [Suspect]
     Dosage: LESS THAN 5 MG ONCE NIGHTLY

REACTIONS (5)
  - Disorientation [Recovered/Resolved]
  - Dysphoria [Recovered/Resolved]
  - Wrong technique in drug usage process [Unknown]
  - Prescribed underdose [Unknown]
  - Inappropriate schedule of drug administration [Unknown]
